FAERS Safety Report 12987269 (Version 1)
Quarter: 2016Q4

REPORT INFORMATION
  Report Type: Report from Study
  Country: GB (occurrence: GB)
  Receive Date: 20161130
  Receipt Date: 20161130
  Transmission Date: 20170207
  Serious: Yes (Death, Hospitalization)
  Sender: FDA-Public Use
  Company Number: GB-GILEAD-2016-0224691

PATIENT
  Sex: Male
  Weight: 77.5 kg

DRUGS (6)
  1. MOMETASONE [Concomitant]
     Active Substance: MOMETASONE
     Dosage: UNK
     Dates: start: 201506
  2. CLENIL MODULITE [Concomitant]
     Active Substance: BECLOMETHASONE DIPROPIONATE
     Dosage: UNK
     Dates: start: 201506
  3. SALBUTAMOL [Concomitant]
     Active Substance: ALBUTEROL
     Dosage: UNK
     Dates: start: 1978
  4. IDELALISIB [Suspect]
     Active Substance: IDELALISIB
     Indication: CHRONIC LYMPHOCYTIC LEUKAEMIA
     Dosage: 150 MG, BID
     Route: 048
     Dates: start: 20160222, end: 20160713
  5. ACICLOVIR [Concomitant]
     Active Substance: ACYCLOVIR
     Dosage: UNK
     Dates: start: 20160321
  6. CO TRIMOXAZOLE                     /00086101/ [Concomitant]
     Dosage: UNK
     Dates: start: 20160321

REACTIONS (2)
  - Febrile neutropenia [Recovered/Resolved with Sequelae]
  - Febrile neutropenia [Fatal]

NARRATIVE: CASE EVENT DATE: 20160713
